FAERS Safety Report 7721635-4 (Version None)
Quarter: 2011Q3

REPORT INFORMATION
  Report Type: 
  Country: None (occurrence: None)
  Receive Date: 20110831
  Receipt Date: 20110819
  Transmission Date: 20111222
  Serious: Yes (Hospitalization)
  Sender: FDA-Public Use
  Company Number: US-GLAXOSMITHKLINE-A0747385A

PATIENT
  Age: 44 Year
  Sex: Male
  Weight: 90.9 kg

DRUGS (8)
  1. NEURONTIN [Concomitant]
  2. TENORMIN [Concomitant]
  3. LIPITOR [Concomitant]
  4. AVANDIA [Suspect]
     Indication: TYPE 2 DIABETES MELLITUS
     Dosage: 4MG TWICE PER DAY
     Route: 048
     Dates: start: 20030101, end: 20070101
  5. PLAVIX [Concomitant]
  6. REGULAR INSULIN [Concomitant]
     Dates: start: 19960101
  7. DILANTIN [Concomitant]
  8. PREVACID [Concomitant]

REACTIONS (4)
  - CARDIOVASCULAR DISORDER [None]
  - AMPUTATION [None]
  - MYOCARDIAL INFARCTION [None]
  - TRANSIENT ISCHAEMIC ATTACK [None]
